FAERS Safety Report 14652043 (Version 1)
Quarter: 2018Q1

REPORT INFORMATION
  Report Type: Spontaneous
  Country: DE (occurrence: DE)
  Receive Date: 20180318
  Receipt Date: 20180318
  Transmission Date: 20180509
  Serious: Yes (Other)
  Sender: FDA-Public Use
  Company Number: DE-DEXPHARM-20180182

PATIENT
  Sex: Male
  Weight: 76 kg

DRUGS (7)
  1. L THYROX HEXAL 50 [Suspect]
     Active Substance: LEVOTHYROXINE SODIUM
  2. METHADONHYDROCHLORID-LOSUNG 1% [Suspect]
     Active Substance: METHADONE HYDROCHLORIDE
  3. CHLORPROTHIXEN-NEURAXPHARM 50MG [Suspect]
     Active Substance: CHLORPROTHIXENE HYDROCHLORIDE
  4. VALDOXAN [Suspect]
     Active Substance: AGOMELATINE
  5. OMEPRAZOLE- NOT DEXCEL^S PRODUCT [Suspect]
     Active Substance: OMEPRAZOLE
  6. ORFIRIL LONG 300MG [Suspect]
     Active Substance: VALPROIC ACID
  7. PREGABALIN-NEURAXPHARM 50MG [Suspect]
     Active Substance: PREGABALIN

REACTIONS (1)
  - Autoimmune disorder [Unknown]
